FAERS Safety Report 9260554 (Version 1)
Quarter: 2013Q2

REPORT INFORMATION
  Report Type: Spontaneous
  Country: CA (occurrence: CA)
  Receive Date: 20130429
  Receipt Date: 20130429
  Transmission Date: 20140414
  Serious: Yes (Death)
  Sender: FDA-Public Use
  Company Number: CA-TEVA-400870USA

PATIENT
  Age: 55 Year
  Sex: Male
  Weight: 95 kg

DRUGS (8)
  1. ATENOLOL [Suspect]
     Route: 065
  2. VENLAFAXINE HYDROCHLORIDE [Suspect]
     Dosage: EXTENDED-RELEASE
     Route: 065
  3. AMITRIPTYLINE [Concomitant]
  4. CRESTOR [Concomitant]
  5. FENTANYL [Concomitant]
  6. GABAPENTIN [Concomitant]
  7. METFORMIN [Concomitant]
  8. OXYCODONE W/PARACETAMOL [Concomitant]

REACTIONS (3)
  - Road traffic accident [Fatal]
  - Head injury [Fatal]
  - Neck injury [Fatal]
